FAERS Safety Report 4685171-4 (Version None)
Quarter: 2005Q2

REPORT INFORMATION
  Report Type: 
  Country: None (occurrence: None)
  Receive Date: 20050608
  Receipt Date: 20050602
  Transmission Date: 20051028
  Serious: Yes (Other)
  Sender: FDA-Public Use
  Company Number: 200515129GDDC

PATIENT
  Age: 73 Year
  Sex: Female

DRUGS (6)
  1. FRUSEMIDE [Suspect]
     Indication: ESSENTIAL HYPERTENSION
     Route: 048
     Dates: start: 19930714, end: 19930717
  2. AMIODARONE HYDROCHLORIDE [Suspect]
     Indication: ARRHYTHMIA
     Route: 042
     Dates: start: 19930716
  3. HEPARIN SODIUM [Suspect]
     Indication: PROPHYLAXIS
     Route: 058
     Dates: start: 19930715, end: 19930718
  4. AMILORIDE HYDROCHLORIDE [Suspect]
     Indication: ESSENTIAL HYPERTENSION
     Route: 048
     Dates: start: 19930714, end: 19930717
  5. RANITIDINE [Suspect]
     Route: 048
     Dates: start: 19930714, end: 19930722
  6. TEMAZEPAM [Suspect]
     Indication: SLEEP DISORDER
     Route: 048
     Dates: start: 19930712, end: 19930721

REACTIONS (1)
  - ATRIOVENTRICULAR BLOCK [None]
